FAERS Safety Report 7343266-0 (Version None)
Quarter: 2011Q1

REPORT INFORMATION
  Report Type: 
  Country: None (occurrence: None)
  Receive Date: 20110310
  Receipt Date: 20110303
  Transmission Date: 20110831
  Serious: Yes (Other)
  Sender: FDA-Public Use
  Company Number: US-US-EMD SERONO, INC.-7040853

PATIENT
  Sex: Female
  Weight: 113 kg

DRUGS (6)
  1. GLYCETROL [Concomitant]
     Indication: DIABETES MELLITUS
     Dates: start: 20080101
  2. UNSPECIFIED SLEEPLING PILLS [Concomitant]
  3. STEROIDS [Suspect]
     Indication: MULTIPLE SCLEROSIS RELAPSE
     Route: 048
     Dates: start: 20100201
  4. REBIF [Suspect]
     Indication: MULTIPLE SCLEROSIS
     Route: 058
     Dates: start: 20090530
  5. TYLENOL [Concomitant]
     Indication: PREMEDICATION
  6. ALEVE [Concomitant]
     Indication: PREMEDICATION

REACTIONS (5)
  - INJECTION SITE ERYTHEMA [None]
  - BLOOD GLUCOSE INCREASED [None]
  - DIZZINESS [None]
  - OEDEMA PERIPHERAL [None]
  - MULTIPLE SCLEROSIS RELAPSE [None]
